FAERS Safety Report 5629099-1 (Version None)
Quarter: 2008Q1

REPORT INFORMATION
  Report Type: 
  Country: None (occurrence: None)
  Receive Date: 20080216
  Receipt Date: 20080111
  Transmission Date: 20080703
  Serious: No
  Sender: FDA-Public Use
  Company Number: US-BAXTER-2008BH000407

PATIENT
  Age: 80 Year
  Sex: Male
  Weight: 87 kg

DRUGS (2)
  1. HEPARIN SODIUM [Suspect]
     Indication: CEREBROVASCULAR ACCIDENT
     Route: 042
     Dates: start: 20080110, end: 20080110
  2. GLUCOSE [Suspect]
     Indication: CEREBROVASCULAR ACCIDENT
     Route: 042
     Dates: start: 20080110, end: 20080110

REACTIONS (1)
  - INCORRECT DRUG ADMINISTRATION RATE [None]
